FAERS Safety Report 6227363-9 (Version None)
Quarter: 2009Q2

REPORT INFORMATION
  Report Type: 
  Country: None (occurrence: None)
  Receive Date: 20090610
  Receipt Date: 20090529
  Transmission Date: 20091009
  Serious: Yes (Hospitalization)
  Sender: FDA-Public Use
  Company Number: 2009-196390-NL

PATIENT
  Age: 28 Year

DRUGS (2)
  1. FOLLITROPIN BETA [Suspect]
     Indication: OVULATION INDUCTION
     Dosage: 150 UI ONCE, 150 IU ONCE / 225 IU ONCE / 300 IU ONCE/ 300 MD ONCE
     Dates: start: 20080306
  2. CHORIONIC GONADOTROPIN [Concomitant]
     Indication: ASSISTED FERTILISATION
     Dosage: 1500 IV ONCE
     Route: 042
     Dates: start: 20080319

REACTIONS (5)
  - ABDOMINAL PAIN LOWER [None]
  - ABORTION [None]
  - DRUG EXPOSURE DURING PREGNANCY [None]
  - ECTOPIC PREGNANCY [None]
  - OVARIAN HYPERSTIMULATION SYNDROME [None]
